FAERS Safety Report 6430756-8 (Version None)
Quarter: 2009Q4

REPORT INFORMATION
  Report Type: 
  Country: None (occurrence: None)
  Receive Date: 20091105
  Receipt Date: 20091105
  Transmission Date: 20100525
  Serious: Yes (Life-Threatening, Hospitalization)
  Sender: FDA-Public Use
  Company Number: None

PATIENT
  Age: 25 Year
  Sex: Female
  Weight: 41.3 kg

DRUGS (1)
  1. TOPAMAX [Suspect]
     Indication: CONVULSION
     Dosage: 50MG, DAILY, PO; MONTHS
     Route: 048
     Dates: start: 20090630, end: 20091104

REACTIONS (4)
  - BONE MARROW FAILURE [None]
  - HYPERCALCAEMIA [None]
  - RENAL IMPAIRMENT [None]
  - WEIGHT DECREASED [None]
